FAERS Safety Report 12237827 (Version 3)
Quarter: 2016Q2

REPORT INFORMATION
  Report Type: Report from Study
  Country: IE (occurrence: IE)
  Receive Date: 20160405
  Receipt Date: 20160613
  Transmission Date: 20160815
  Serious: Yes (Death, Hospitalization, Other)
  Sender: FDA-Public Use
  Company Number: PHFR2016IE000713

PATIENT
  Age: 84 Year
  Sex: Male
  Weight: 91 kg

DRUGS (1)
  1. ULTIBRO BREEZHALER [Suspect]
     Active Substance: GLYCOPYRRONIUM\INDACATEROL
     Indication: CHRONIC OBSTRUCTIVE PULMONARY DISEASE
     Dosage: 1 DF (43 MCG GLYCOPYRRONIUM BROMIDE/85 MCG INDACATEROL), QD
     Route: 055
     Dates: start: 20150920, end: 20160110

REACTIONS (6)
  - Pulmonary embolism [Unknown]
  - Cataract [Unknown]
  - Lower respiratory tract infection [Unknown]
  - General physical health deterioration [Unknown]
  - Cerebrovascular accident [Fatal]
  - Diarrhoea [Unknown]

NARRATIVE: CASE EVENT DATE: 20160102
